FAERS Safety Report 7669747-8 (Version None)
Quarter: 2011Q3

REPORT INFORMATION
  Report Type: 
  Country: None (occurrence: None)
  Receive Date: 20110808
  Receipt Date: 20110802
  Transmission Date: 20111222
  Serious: Yes (Other)
  Sender: FDA-Public Use
  Company Number: US-PFIZER INC-2011062548

PATIENT
  Sex: Female
  Weight: 95.238 kg

DRUGS (4)
  1. CELEBREX [Suspect]
     Indication: ARTHRALGIA
  2. CELEBREX [Suspect]
     Indication: ARTHRITIS
     Dosage: 200 MG, 2X/DAY
     Route: 048
     Dates: end: 20110318
  3. DIOVAN HCT [Concomitant]
     Indication: HYPERTENSION
     Dosage: 1X/DAY IN THE MORNING
  4. CALCIUM [Concomitant]
     Dosage: UNK

REACTIONS (2)
  - THROMBOSIS [None]
  - ATRIAL FIBRILLATION [None]
